FAERS Safety Report 4676973-9 (Version None)
Quarter: 2005Q2

REPORT INFORMATION
  Report Type: 
  Country: None (occurrence: None)
  Receive Date: 20050526
  Receipt Date: 20050511
  Transmission Date: 20051028
  Serious: Yes (Other)
  Sender: FDA-Public Use
  Company Number: 2005SP000596

PATIENT
  Sex: Male

DRUGS (3)
  1. LUNESTA [Suspect]
     Dosage: 1X; ORAL
     Route: 048
     Dates: start: 20050511
  2. ATIVA (1 MG) [Suspect]
     Dosage: 1X; ORAL
     Route: 048
     Dates: start: 20050511
  3. VICODIN ES [Suspect]
     Dosage: 1X; ORAL
     Route: 048
     Dates: start: 20050511

REACTIONS (3)
  - INTENTIONAL MISUSE [None]
  - LOSS OF CONSCIOUSNESS [None]
  - MULTIPLE DRUG OVERDOSE [None]
